FAERS Safety Report 14972733 (Version 2)
Quarter: 2018Q2

REPORT INFORMATION
  Report Type: Spontaneous
  Country: US (occurrence: US)
  Receive Date: 20180605
  Receipt Date: 20180607
  Transmission Date: 20180711
  Serious: No
  Sender: FDA-Public Use
  Company Number: US-PFIZER INC-2018226653

PATIENT
  Sex: Male

DRUGS (7)
  1. AMLODIPINE BESILATE [Suspect]
     Active Substance: AMLODIPINE BESYLATE
     Indication: CARDIAC DISORDER
     Dosage: 5 MG, UNK
  2. OXYCONTIN [Interacting]
     Active Substance: OXYCODONE HYDROCHLORIDE
     Indication: PAIN
     Dosage: 40 MG, UNK
  3. VIAGRA [Interacting]
     Active Substance: SILDENAFIL CITRATE
     Dosage: 100 MG, UNK
  4. GABAPENTIN. [Interacting]
     Active Substance: GABAPENTIN
     Indication: NERVE INJURY
     Dosage: 2400 MG, DAILY (3 TABLETS OF 800MG DAILY)
  5. GABAPENTIN. [Interacting]
     Active Substance: GABAPENTIN
     Indication: PAIN
     Dosage: 800 MG, 3X/DAY
  6. OXYCODONE [Interacting]
     Active Substance: OXYCODONE
     Indication: PAIN
     Dosage: 50 MG, 3X/DAY
  7. MORPHINE SULFATE. [Interacting]
     Active Substance: MORPHINE SULFATE
     Indication: PAIN
     Dosage: UNK

REACTIONS (1)
  - Drug interaction [Unknown]
